FAERS Safety Report 6413110-4 (Version None)
Quarter: 2009Q4

REPORT INFORMATION
  Report Type: 
  Country: None (occurrence: None)
  Receive Date: 20091022
  Receipt Date: 20091022
  Transmission Date: 20100525
  Serious: Yes (Hospitalization)
  Sender: FDA-Public Use
  Company Number: None

PATIENT
  Age: 57 Year
  Sex: Female
  Weight: 80.7403 kg

DRUGS (10)
  1. ARAVA [Suspect]
     Indication: RHEUMATOID ARTHRITIS
     Dosage: 20 MG PO QD
     Route: 048
     Dates: start: 20070101, end: 20090701
  2. LIPITOR [Concomitant]
  3. RARE TRAMADOL [Concomitant]
  4. RARE TYLENOL [Concomitant]
  5. ASTIPRO NASAL SPRAY [Concomitant]
  6. RARE SOLAREGE [Concomitant]
  7. TUMS [Concomitant]
  8. M.V.I. [Concomitant]
  9. CALCIUM [Concomitant]
  10. DICLOFENAC GEL [Concomitant]

REACTIONS (4)
  - DIPLOPIA [None]
  - IDIOPATHIC THROMBOCYTOPENIC PURPURA [None]
  - MYASTHENIA GRAVIS [None]
  - SPLENOMEGALY [None]
